FAERS Safety Report 6004824-9 (Version None)
Quarter: 2008Q4

REPORT INFORMATION
  Report Type: 
  Country: None (occurrence: None)
  Receive Date: 20081216
  Receipt Date: 20081205
  Transmission Date: 20090506
  Serious: Yes (Hospitalization, Other)
  Sender: FDA-Public Use
  Company Number: FR-AMGEN-US254283

PATIENT
  Sex: Female

DRUGS (7)
  1. ENBREL [Suspect]
     Indication: PSORIATIC ARTHROPATHY
     Route: 058
     Dates: start: 20020601
  2. CORTISONE ACETATE TAB [Suspect]
     Indication: DRUG USE FOR UNKNOWN INDICATION
     Dates: start: 20081128, end: 20081128
  3. UNSPECIFIED ANTIHYPERTENSIVE AGENT [Suspect]
  4. HYPERIUM [Concomitant]
     Indication: HYPERTENSION
     Dosage: UNKNOWN
  5. VOLTAREN [Concomitant]
     Dosage: 75 MG TOTAL DAILY
     Route: 048
  6. FLUDEX [Concomitant]
     Indication: HYPERTENSION
     Dosage: UNKNOWN
  7. DILTIAZEM HYDROCHLORIDE [Concomitant]

REACTIONS (12)
  - ARTHRALGIA [None]
  - ASTHENIA [None]
  - CONDITION AGGRAVATED [None]
  - DRUG EFFECT DELAYED [None]
  - ECCHYMOSIS [None]
  - FALL [None]
  - HYPERTENSION [None]
  - INJECTION SITE ERYTHEMA [None]
  - INJECTION SITE INDURATION [None]
  - INJECTION SITE MASS [None]
  - INJECTION SITE WARMTH [None]
  - SYNCOPE [None]
